FAERS Safety Report 5567051-5 (Version None)
Quarter: 2007Q4

REPORT INFORMATION
  Report Type: 
  Country: None (occurrence: None)
  Receive Date: 20071219
  Receipt Date: 20071213
  Transmission Date: 20080405
  Serious: Yes (Hospitalization)
  Sender: FDA-Public Use
  Company Number: JP-ALLERGAN-0713767US

PATIENT
  Sex: Female

DRUGS (9)
  1. BOTULINUM TOXIN TYPE A - GENERAL [Suspect]
     Indication: TORTICOLLIS
     Dosage: 60 UNITS, SINGLE
     Route: 030
     Dates: start: 20071207, end: 20071207
  2. PRAMIPEXOLE DIHYDROCHLORIDE [Concomitant]
  3. TIZANIDINE HCL [Concomitant]
  4. BACLOFEN [Concomitant]
  5. AMBROXOL HYDROCHLORIDE [Concomitant]
  6. CARBOCISTEINE [Concomitant]
  7. TEPRENONE [Concomitant]
  8. CHINESE MEDICINE [Concomitant]
  9. LEVODOPA BENSERAZIDE HYDROCHLO [Concomitant]

REACTIONS (3)
  - ASPIRATION [None]
  - DYSPHAGIA [None]
  - OBSTRUCTIVE AIRWAYS DISORDER [None]
